FAERS Safety Report 8116894-2 (Version None)
Quarter: 2012Q1

REPORT INFORMATION
  Report Type: 
  Country: None (occurrence: None)
  Receive Date: 20120206
  Receipt Date: 20120131
  Transmission Date: 20120608
  Serious: Yes (Hospitalization, Other)
  Sender: FDA-Public Use
  Company Number: PHHY2012DK003017

PATIENT
  Sex: Female
  Weight: 59 kg

DRUGS (2)
  1. DICLOFENAC SODIUM [Suspect]
     Indication: PAIN
     Dosage: STYRKE: 75 MG
     Route: 048
     Dates: end: 20111128
  2. TOPAMAX [Concomitant]
     Indication: PAIN
     Dates: start: 20111128

REACTIONS (8)
  - BODY TEMPERATURE INCREASED [None]
  - DIARRHOEA [None]
  - ABDOMINAL PAIN [None]
  - COLITIS EROSIVE [None]
  - ILEAL STENOSIS [None]
  - COLITIS [None]
  - ANAEMIA [None]
  - WEIGHT DECREASED [None]
